FAERS Safety Report 20878885 (Version 1)
Quarter: 2022Q2

REPORT INFORMATION
  Report Type: Spontaneous
  Country: NL (occurrence: NL)
  Receive Date: 20220526
  Receipt Date: 20220526
  Transmission Date: 20220720
  Serious: Yes (Other)
  Sender: FDA-Public Use
  Company Number: NL-TEVA-2022-NL-2038891

PATIENT
  Sex: Female
  Weight: 50 kg

DRUGS (12)
  1. LEFLUNOMIDE [Suspect]
     Active Substance: LEFLUNOMIDE
     Indication: Rheumatoid arthritis
     Dosage: 10 MILLIGRAM DAILY;
     Route: 065
     Dates: end: 2021
  2. PREDNISONE [Suspect]
     Active Substance: PREDNISONE
     Route: 065
  3. METHOTREXATE [Suspect]
     Active Substance: METHOTREXATE
     Indication: Rheumatoid arthritis
     Dosage: 10 MG PER WEEK
     Route: 065
  4. PLAQUENIL [Concomitant]
     Active Substance: HYDROXYCHLOROQUINE SULFATE
     Dosage: 200 MILLIGRAM DAILY;
  5. PLAQUENIL [Concomitant]
     Active Substance: HYDROXYCHLOROQUINE SULFATE
     Dosage: 400 MILLIGRAM DAILY;
  6. VITAMIN B12 [Concomitant]
     Active Substance: CYANOCOBALAMIN
  7. VITAMIN D [Concomitant]
     Active Substance: VITAMIN D NOS
  8. EUTHYROX [Concomitant]
     Active Substance: LEVOTHYROXINE SODIUM
  9. METHOTREXATE [Concomitant]
     Active Substance: METHOTREXATE
  10. FOLIC ACID [Concomitant]
     Active Substance: FOLIC ACID
  11. BIOTIN [Concomitant]
     Active Substance: BIOTIN
     Dosage: 2.5 MILLIGRAM DAILY; IN THE AFTERNOON
  12. ACLASTA [Concomitant]
     Active Substance: ZOLEDRONIC ACID

REACTIONS (6)
  - Spinal compression fracture [Recovered/Resolved with Sequelae]
  - Rash [Recovered/Resolved]
  - Insomnia [Recovered/Resolved]
  - Back disorder [Not Recovered/Not Resolved]
  - Product prescribing error [Unknown]
  - Product prescribing error [Unknown]

NARRATIVE: CASE EVENT DATE: 20210101
